FAERS Safety Report 9549159 (Version 1)
Quarter: 2013Q3

REPORT INFORMATION
  Report Type: Spontaneous
  Country: BR (occurrence: BR)
  Receive Date: 20130924
  Receipt Date: 20130924
  Transmission Date: 20140515
  Serious: Yes (Other)
  Sender: FDA-Public Use
  Company Number: BR-BAYER-2013-113823

PATIENT
  Age: 25 Year
  Sex: Female
  Weight: 53.06 kg

DRUGS (1)
  1. QLAIRA [Suspect]
     Indication: CONTRACEPTION
     Dosage: 1 DF, QD
     Route: 048
     Dates: start: 20130906

REACTIONS (2)
  - Metrorrhagia [Recovered/Resolved]
  - Pyelonephritis [None]
